FAERS Safety Report 4330254-1 (Version None)
Quarter: 2004Q1

REPORT INFORMATION
  Report Type: 
  Country: None (occurrence: None)
  Receive Date: 20040326
  Receipt Date: 20040326
  Transmission Date: 20041129
  Serious: Yes (Other)
  Sender: FDA-Public Use
  Company Number: None

PATIENT
  Age: 31 Year
  Sex: Female
  Weight: 61.2356 kg

DRUGS (1)
  1. PHENERGAN [Suspect]
     Indication: NAUSEA
     Dosage: PROB. 25 MG IVP
     Route: 042

REACTIONS (7)
  - CAUSTIC INJURY [None]
  - EXTRAVASATION [None]
  - IATROGENIC INJURY [None]
  - INJECTION SITE REACTION [None]
  - PAIN [None]
  - REFLEX SYMPATHETIC DYSTROPHY [None]
  - SWELLING [None]
